FAERS Safety Report 4384647-7 (Version None)
Quarter: 2004Q2

REPORT INFORMATION
  Report Type: 
  Country: None (occurrence: None)
  Receive Date: 20040625
  Receipt Date: 20040329
  Transmission Date: 20050107
  Serious: No
  Sender: FDA-Public Use
  Company Number: US-BRISTOL-MYERS SQUIBB COMPANY-12543708

PATIENT
  Sex: Male

DRUGS (1)
  1. SINEMET CR [Suspect]
     Indication: PARKINSON'S DISEASE
     Dosage: THERAPY DURATION - APPROXIMATELY 5 TO 7 YEARS
     Route: 048

REACTIONS (1)
  - DRUG INEFFECTIVE [None]
